FAERS Safety Report 5679460-4 (Version None)
Quarter: 2008Q1

REPORT INFORMATION
  Report Type: 
  Country: None (occurrence: None)
  Receive Date: 20080325
  Receipt Date: 20080313
  Transmission Date: 20080703
  Serious: Yes (Other)
  Sender: FDA-Public Use
  Company Number: US-PFIZER INC-2007073229

PATIENT
  Sex: Female
  Weight: 53.5 kg

DRUGS (4)
  1. CHANTIX [Suspect]
     Indication: SMOKING CESSATION THERAPY
     Route: 048
     Dates: start: 20070503, end: 20070901
  2. TOPROL [Concomitant]
     Indication: HYPERTENSION
  3. LORTAB [Concomitant]
     Indication: BACK PAIN
  4. VALIUM [Concomitant]
     Indication: BACK PAIN
     Dosage: FREQ:AS NEEDED

REACTIONS (5)
  - PNEUMONIA [None]
  - RALES [None]
  - RHONCHI [None]
  - SPUTUM DISCOLOURED [None]
  - WHEEZING [None]
